FAERS Safety Report 15059917 (Version 2)
Quarter: 2018Q3

REPORT INFORMATION
  Report Type: Spontaneous
  Country: US (occurrence: US)
  Receive Date: 20180625
  Receipt Date: 20180928
  Transmission Date: 20181010
  Serious: Yes (Other)
  Sender: FDA-Public Use
  Company Number: US-SA-2018SA162384

PATIENT
  Age: 41 Year
  Sex: Female
  Weight: 78 kg

DRUGS (2)
  1. TAXOTERE [Suspect]
     Active Substance: DOCETAXEL
     Indication: BREAST CANCER
     Dosage: 125 MG EVERY TWO WEEKS
     Route: 042
     Dates: start: 20060406, end: 20060406
  2. TAXOTERE [Suspect]
     Active Substance: DOCETAXEL
     Dosage: 125 MG, EVERY TWO WEEKS
     Route: 042
     Dates: start: 20060525, end: 20060525

REACTIONS (2)
  - Psychological trauma [Unknown]
  - Alopecia [Not Recovered/Not Resolved]
